FAERS Safety Report 4597835-1 (Version None)
Quarter: 2005Q1

REPORT INFORMATION
  Report Type: 
  Country: None (occurrence: None)
  Receive Date: 20050301
  Receipt Date: 20050210
  Transmission Date: 20050727
  Serious: Yes (Hospitalization)
  Sender: FDA-Public Use
  Company Number: 05-114

PATIENT
  Age: 69 Year
  Sex: Female

DRUGS (5)
  1. VERAPAMIL HCL TABLETS SR [Suspect]
     Indication: ATRIAL FIBRILLATION
     Dosage: 160 MG (160 MG, 1 IN 1 D), ORAL
     Route: 048
     Dates: start: 20040619, end: 20040702
  2. PILSICAINIDE HCL, 150 MG, (1 IN 1 D) [Concomitant]
  3. PRAVASTATIN SODIUM, 20 MG, (1 IN 1 D) [Concomitant]
  4. HALFDIGOXIN KY, 0.1 MG, (1 IN 1 D) [Concomitant]
  5. ACETYLSALICYLIC ACID, 100 MG, (1 IN 1 D) [Concomitant]

REACTIONS (2)
  - DERMATOMYOSITIS [None]
  - ERYTHEMA MULTIFORME [None]
